FAERS Safety Report 13883111 (Version 1)
Quarter: 2017Q3

REPORT INFORMATION
  Report Type: Spontaneous
  Country: US (occurrence: US)
  Receive Date: 20170818
  Receipt Date: 20170818
  Transmission Date: 20171127
  Serious: Yes (Other)
  Sender: FDA-Public Use
  Company Number: US-SUNOVION-2017SUN003665

PATIENT
  Sex: Female

DRUGS (4)
  1. ASPIRIN. [Suspect]
     Active Substance: ASPIRIN
  2. DIAZEPAM. [Suspect]
     Active Substance: DIAZEPAM
  3. BROVANA [Suspect]
     Active Substance: ARFORMOTEROL TARTRATE
     Dosage: UNK
     Route: 055
  4. ALBUTEROL. [Concomitant]
     Active Substance: ALBUTEROL

REACTIONS (7)
  - Tongue biting [Unknown]
  - Neoplasm [Unknown]
  - Dyspnoea [Unknown]
  - Haemoptysis [Unknown]
  - Haemorrhage [Unknown]
  - Dysphonia [Unknown]
  - Peripheral swelling [Unknown]
